FAERS Safety Report 4898979-7 (Version None)
Quarter: 2006Q1

REPORT INFORMATION
  Report Type: 
  Country: None (occurrence: None)
  Receive Date: 20060127
  Receipt Date: 20060111
  Transmission Date: 20060701
  Serious: Yes (Hospitalization)
  Sender: FDA-Public Use
  Company Number: MEDI-0004029

PATIENT
  Age: 72 Year
  Sex: Male
  Weight: 71.6683 kg

DRUGS (5)
  1. ETHYOL [Suspect]
     Indication: RADIOTHERAPY
     Dosage: 500 MG, 5 IN 1 WK, SUBCUTANEOUS
     Route: 058
     Dates: start: 20051123, end: 20051212
  2. RADIATION THERAPY [Concomitant]
  3. TAXOL [Concomitant]
  4. CARBOPLATIN [Concomitant]
  5. VITAMIN HERBAL SUPPLEMENTAL COCKTAIL [Concomitant]

REACTIONS (5)
  - CONFUSIONAL STATE [None]
  - DRUG HYPERSENSITIVITY [None]
  - DYSPHAGIA [None]
  - SEPSIS [None]
  - WEIGHT DECREASED [None]
